FAERS Safety Report 15836623 (Version 1)
Quarter: 2019Q1

REPORT INFORMATION
  Report Type: Spontaneous
  Country: US (occurrence: US)
  Receive Date: 20190117
  Receipt Date: 20190117
  Transmission Date: 20190417
  Serious: No
  Sender: FDA-Public Use
  Company Number: None

PATIENT
  Age: 22 Year
  Sex: Female
  Weight: 81.65 kg

DRUGS (1)
  1. MIRENA [Suspect]
     Active Substance: LEVONORGESTREL

REACTIONS (9)
  - Hypoaesthesia [None]
  - Ear discomfort [None]
  - Feeling abnormal [None]
  - Headache [None]
  - Anxiety [None]
  - Mood swings [None]
  - Suicidal ideation [None]
  - Complication associated with device [None]
  - Fatigue [None]

NARRATIVE: CASE EVENT DATE: 20190103
